FAERS Safety Report 19951769 (Version 2)
Quarter: 2021Q4

REPORT INFORMATION
  Report Type: Spontaneous
  Country: DE (occurrence: DE)
  Receive Date: 20211013
  Receipt Date: 20211029
  Transmission Date: 20220303
  Serious: Yes (Other)
  Sender: FDA-Public Use
  Company Number: DE-002147023-NVSC2021DE212318

PATIENT
  Age: 75 Year
  Sex: Male
  Weight: 86 kg

DRUGS (4)
  1. EPLERENONE [Suspect]
     Active Substance: EPLERENONE
     Dosage: 25 MG, 1X/DAY
     Route: 065
  2. TORSEMIDE [Suspect]
     Active Substance: TORSEMIDE
     Dosage: 20 MG, 2X/DAY
     Route: 065
  3. BISOPROLOL [Suspect]
     Active Substance: BISOPROLOL
     Dosage: 5 MG, 2X/DAY
     Route: 065
  4. ENTRESTO [Suspect]
     Active Substance: SACUBITRIL\VALSARTAN
     Indication: Congestive cardiomyopathy
     Dosage: 200 MG, 2X/DAY
     Route: 065

REACTIONS (5)
  - Weight increased [Unknown]
  - Orthopnoea [Unknown]
  - Cardiac failure acute [Unknown]
  - Dyspnoea [Unknown]
  - Cardiac failure [Unknown]

NARRATIVE: CASE EVENT DATE: 20180101
